FAERS Safety Report 12136164 (Version 1)
Quarter: 2016Q1

REPORT INFORMATION
  Report Type: Spontaneous
  Country: US (occurrence: None)
  Receive Date: 20160301
  Receipt Date: 20160301
  Transmission Date: 20160526
  Serious: Yes (Other)
  Sender: FDA-Public Use
  Company Number: None

PATIENT
  Age: 54 Year
  Sex: Female
  Weight: 92.53 kg

DRUGS (2)
  1. CEPHALEXIN 500 MG CAPSULE TAKE 1 CAPSULE 4X A DAY X 5 DAYS [Suspect]
     Active Substance: CEPHALEXIN
     Indication: FOLLICULITIS
     Route: 048
     Dates: start: 20151217, end: 20151222
  2. VERAPAMIL ER [Concomitant]
     Active Substance: VERAPAMIL HYDROCHLORIDE

REACTIONS (10)
  - Hepatic pain [None]
  - Rash generalised [None]
  - Eye pain [None]
  - Drug hypersensitivity [None]
  - Presyncope [None]
  - Tinnitus [None]
  - Pruritus [None]
  - Cardiac flutter [None]
  - Hepatomegaly [None]
  - Ocular hyperaemia [None]

NARRATIVE: CASE EVENT DATE: 20151222
